FAERS Safety Report 9055187 (Version 2)
Quarter: 2013Q1

REPORT INFORMATION
  Report Type: Spontaneous
  Country: JP (occurrence: JP)
  Receive Date: 20130206
  Receipt Date: 20130327
  Transmission Date: 20140127
  Serious: Yes (Death)
  Sender: FDA-Public Use
  Company Number: JP-GENZYME-CERZ-1002802

PATIENT
  Age: 3 None
  Sex: Female
  Weight: 9 kg

DRUGS (1)
  1. CEREZYME [Suspect]
     Indication: GAUCHER^S DISEASE
     Dosage: 6.67 U/KG, Q2W
     Route: 042
     Dates: start: 201008, end: 20121231

REACTIONS (3)
  - Dysuria [Fatal]
  - Respiratory failure [Fatal]
  - Cardiac failure [Fatal]
